FAERS Safety Report 5845573-7 (Version None)
Quarter: 2008Q3

REPORT INFORMATION
  Report Type: 
  Country: None (occurrence: None)
  Receive Date: 20080814
  Receipt Date: 20080812
  Transmission Date: 20090109
  Serious: Yes (Hospitalization)
  Sender: FDA-Public Use
  Company Number: FR-WYE-G01994108

PATIENT
  Sex: Female

DRUGS (13)
  1. TAZOCILLINE [Suspect]
     Indication: BREAST ABSCESS
     Dosage: OVERDOSE AMOUNT : UNSPECIFIED
     Route: 042
     Dates: start: 20080125, end: 20080219
  2. TAZOCILLINE [Suspect]
     Indication: STAPHYLOCOCCAL ABSCESS
     Dosage: 500 MG TOTAL DAILY
     Route: 042
     Dates: start: 20080220, end: 20080303
  3. VANCOMYCIN HCL [Concomitant]
     Dosage: UNKNOWN
     Route: 042
     Dates: start: 20080206, end: 20080211
  4. TEICOPLANIN [Concomitant]
     Dosage: UNKNOWN
     Route: 042
     Dates: start: 20080125, end: 20080206
  5. METHOTREXATE [Concomitant]
     Indication: RHEUMATOID ARTHRITIS
     Dosage: UNKNOWN
  6. LEVOTHYROX [Concomitant]
     Indication: HYPOTHYROIDISM
     Dosage: UNKNOWN
     Route: 048
  7. SERETIDE [Concomitant]
     Indication: BRONCHOPNEUMOPATHY
     Dosage: UNKNOWN
     Route: 048
  8. BRONCHODUAL [Concomitant]
     Indication: BRONCHOPNEUMOPATHY
     Dosage: UNKNOWN
     Route: 048
  9. ALDACTAZINE [Concomitant]
     Indication: HYPERTENSION
     Dosage: UNKNOWN
     Route: 048
  10. KENZEN [Concomitant]
     Indication: HYPERTENSION
     Dosage: UNKNOWN
     Route: 048
  11. COLIMYCINE [Suspect]
     Indication: BREAST ABSCESS
     Dosage: OVERDOSE AMOUNT : UNSPECIFIED
     Route: 042
     Dates: start: 20080125, end: 20080219
  12. COLIMYCINE [Suspect]
     Indication: STAPHYLOCOCCAL ABSCESS
     Dosage: 1M IU TWICE DAILY
     Route: 042
     Dates: start: 20080220, end: 20080303
  13. ARAVA [Concomitant]
     Indication: RHEUMATOID ARTHRITIS
     Dosage: UNKNOWN

REACTIONS (4)
  - ACUTE PULMONARY OEDEMA [None]
  - ACUTE RESPIRATORY FAILURE [None]
  - CONVULSION [None]
  - MULTIPLE DRUG OVERDOSE [None]
